FAERS Safety Report 10996968 (Version 2)
Quarter: 2015Q2

REPORT INFORMATION
  Report Type: Spontaneous
  Country: US (occurrence: US)
  Receive Date: 20150331
  Receipt Date: 20150507
  Transmission Date: 20150821
  Serious: Yes (Other)
  Sender: FDA-Public Use
  Company Number: PHEH2015US000849

PATIENT
  Age: 71 Year
  Sex: Male
  Weight: 77.5 kg

DRUGS (3)
  1. LIPITOR [Concomitant]
     Active Substance: ATORVASTATIN CALCIUM
     Indication: HYPERLIPIDAEMIA
     Dosage: 10 MG, QD
     Route: 048
     Dates: start: 20100527
  2. TASIGNA [Suspect]
     Active Substance: NILOTINIB
     Indication: CHRONIC MYELOID LEUKAEMIA
     Dosage: 150 MG, BID
     Route: 048
     Dates: start: 20140520
  3. TRIBENZOR [Concomitant]
     Active Substance: AMLODIPINE BESYLATE\HYDROCHLOROTHIAZIDE\OLMESARTAN MEDOXOMIL
     Indication: HYPERTENSION
     Dosage: 40/5/10.5 OT, QD
     Route: 048
     Dates: start: 20130723

REACTIONS (9)
  - Polyuria [Unknown]
  - Weight decreased [Unknown]
  - Dry skin [Unknown]
  - Diabetes mellitus [Recovering/Resolving]
  - Polydipsia [Unknown]
  - Hyperglycaemia [Unknown]
  - Vision blurred [Unknown]
  - Pruritus [Unknown]
  - Blood glucose increased [Unknown]

NARRATIVE: CASE EVENT DATE: 20141028
